FAERS Safety Report 6592743-9 (Version None)
Quarter: 2010Q1

REPORT INFORMATION
  Report Type: 
  Country: None (occurrence: None)
  Receive Date: 20100212
  Receipt Date: 20100127
  Transmission Date: 20100710
  Serious: Yes (Hospitalization)
  Sender: FDA-Public Use
  Company Number: 008612

PATIENT
  Age: 56 Year
  Sex: Female
  Weight: 36 kg

DRUGS (8)
  1. PLETAL [Suspect]
     Indication: CEREBRAL INFARCTION
     Dosage: 100 MG, DAILY, DOSE ORAL, 50 MG, QD, ORAL, ORAL
     Route: 048
     Dates: start: 20091030, end: 20091217
  2. PLETAL [Suspect]
     Indication: CEREBRAL INFARCTION
     Dosage: 100 MG, DAILY, DOSE ORAL, 50 MG, QD, ORAL, ORAL
     Route: 048
     Dates: start: 20091218, end: 20100106
  3. PLETAL [Suspect]
     Indication: CEREBRAL INFARCTION
     Dosage: 100 MG, DAILY, DOSE ORAL, 50 MG, QD, ORAL, ORAL
     Route: 048
     Dates: start: 20100121
  4. APONOL (IFENPRODIL TARTRATE) [Concomitant]
  5. CANDESARTAN CILEXETIL [Concomitant]
  6. TAKEPRON OD (LANSOPRAZOLE) [Concomitant]
  7. SELBEX (TEPRENONE) [Concomitant]
  8. FERO-GRADUMET (FERROUS SULFATE) [Concomitant]

REACTIONS (1)
  - GASTRIC ULCER HAEMORRHAGE [None]
